FAERS Safety Report 9090635 (Version 1)
Quarter: 2013Q1

REPORT INFORMATION
  Report Type: Report from Study
  Country: US (occurrence: US)
  Receive Date: 20130218
  Receipt Date: 20130218
  Transmission Date: 20140127
  Serious: No
  Sender: FDA-Public Use
  Company Number: US-ABBOTT-12P-163-0948267-00

PATIENT
  Sex: Male
  Weight: 102.15 kg

DRUGS (6)
  1. SIMCOR 500MG/20MG [Suspect]
     Indication: BLOOD CHOLESTEROL ABNORMAL
     Dosage: AT BEDTIME
     Dates: start: 201105, end: 201201
  2. SIMCOR 500MG/20MG [Suspect]
     Indication: CORONARY ARTERY BYPASS
  3. ASA [Concomitant]
     Indication: PRODUCT USED FOR UNKNOWN INDICATION
  4. RAMIPRIL [Concomitant]
     Indication: PRODUCT USED FOR UNKNOWN INDICATION
  5. COREG [Concomitant]
     Indication: PRODUCT USED FOR UNKNOWN INDICATION
  6. DEPLIN [Concomitant]
     Indication: PRODUCT USED FOR UNKNOWN INDICATION

REACTIONS (1)
  - Flushing [Recovered/Resolved]
